FAERS Safety Report 5243880-2 (Version None)
Quarter: 2007Q1

REPORT INFORMATION
  Report Type: 
  Country: None (occurrence: None)
  Receive Date: 20070220
  Receipt Date: 20070220
  Transmission Date: 20070707
  Serious: Yes (Other)
  Sender: FDA-Public Use
  Company Number: None

PATIENT
  Age: 47 Year
  Sex: Male
  Weight: 70.3075 kg

DRUGS (1)
  1. TRAMADOL HCL [Suspect]
     Indication: MIGRAINE
     Dosage: 50 MG 4-6 TIMES A DAY PO
     Route: 048
     Dates: start: 20040101, end: 20070216

REACTIONS (14)
  - CYANOSIS [None]
  - DEPRESSION [None]
  - DRUG DEPENDENCE [None]
  - GENERALISED OEDEMA [None]
  - IMPAIRED WORK ABILITY [None]
  - INCORRECT DOSE ADMINISTERED [None]
  - LIP SWELLING [None]
  - OEDEMA PERIPHERAL [None]
  - PARALYSIS [None]
  - PHARYNGEAL OEDEMA [None]
  - ROAD TRAFFIC ACCIDENT [None]
  - SKIN DISCOLOURATION [None]
  - SWELLING FACE [None]
  - SWOLLEN TONGUE [None]
